FAERS Safety Report 20691672 (Version 1)
Quarter: 2022Q2

REPORT INFORMATION
  Report Type: Spontaneous
  Country: GB (occurrence: GB)
  Receive Date: 20220408
  Receipt Date: 20220408
  Transmission Date: 20220721
  Serious: Yes (Other)
  Sender: FDA-Public Use
  Company Number: GB-JNJFOC-20220405302

PATIENT
  Age: 71 Year
  Sex: Male

DRUGS (2)
  1. IMBRUVICA [Suspect]
     Active Substance: IBRUTINIB
     Indication: Waldenstrom^s macroglobulinaemia
     Route: 048
     Dates: start: 2020
  2. IMBRUVICA [Suspect]
     Active Substance: IBRUTINIB
     Indication: Crohn^s disease
     Route: 048

REACTIONS (4)
  - Crohn^s disease [Unknown]
  - Diabetes mellitus [Unknown]
  - Hypertension [Unknown]
  - Peripheral swelling [Unknown]
